FAERS Safety Report 5273103-X (Version None)
Quarter: 2007Q1

REPORT INFORMATION
  Report Type: 
  Country: None (occurrence: None)
  Receive Date: 20070322
  Receipt Date: 20070312
  Transmission Date: 20070707
  Serious: Yes (Death)
  Sender: FDA-Public Use
  Company Number: AU-PFIZER INC-2007008856

PATIENT
  Sex: Female
  Weight: 61 kg

DRUGS (8)
  1. IDARUBICIN HCL [Suspect]
     Indication: ACUTE MYELOID LEUKAEMIA
     Route: 042
     Dates: start: 20070112, end: 20070114
  2. CYTARABINE [Suspect]
     Indication: ACUTE MYELOID LEUKAEMIA
     Route: 042
     Dates: start: 20070112, end: 20070119
  3. ETOPOSIDE [Suspect]
     Indication: ACUTE MYELOID LEUKAEMIA
     Route: 042
     Dates: start: 20070112, end: 20070118
  4. PEGFILGRASTIM [Suspect]
     Route: 058
     Dates: start: 20070120, end: 20070120
  5. GENTAMICIN [Concomitant]
  6. FLUCONAZOLE [Concomitant]
     Route: 048
  7. VALTREX [Concomitant]
     Route: 048
  8. MAXOLON [Concomitant]
     Route: 042
     Dates: start: 20070124

REACTIONS (1)
  - PNEUMONIA ASPIRATION [None]
